FAERS Safety Report 6210581-3 (Version None)
Quarter: 2009Q2

REPORT INFORMATION
  Report Type: 
  Country: None (occurrence: None)
  Receive Date: 20090601
  Receipt Date: 20090525
  Transmission Date: 20091009
  Serious: Yes (Death)
  Sender: FDA-Public Use
  Company Number: B0544106A

PATIENT
  Sex: Male

DRUGS (5)
  1. TRIZIVIR [Suspect]
     Indication: HIV INFECTION
     Route: 048
     Dates: start: 20040602, end: 20060203
  2. RETROVIR [Suspect]
     Indication: HIV INFECTION
     Route: 065
     Dates: start: 19970915, end: 19980915
  3. HIVID [Suspect]
     Indication: HIV INFECTION
     Route: 065
     Dates: start: 19970915, end: 19980915
  4. INVIRASE [Suspect]
     Indication: HIV INFECTION
     Route: 065
     Dates: start: 19970915, end: 19990615
  5. COMBIVIR [Concomitant]
     Indication: HIV INFECTION
     Route: 065
     Dates: start: 19980915, end: 19990615

REACTIONS (2)
  - DEATH [None]
  - HEPATOTOXICITY [None]
